FAERS Safety Report 4937181-7 (Version None)
Quarter: 2006Q1

REPORT INFORMATION
  Report Type: 
  Country: None (occurrence: None)
  Receive Date: 20060307
  Receipt Date: 20060307
  Transmission Date: 20060701
  Serious: Yes (Death)
  Sender: FDA-Public Use
  Company Number: None

PATIENT
  Age: 24 Year
  Sex: Female
  Weight: 133.8111 kg

DRUGS (8)
  1. CYTOXAN [Suspect]
     Indication: REFRACTORY ANAEMIA
     Dosage: 500 MG ONCE IV
     Route: 042
     Dates: start: 20060304, end: 20060304
  2. CYANOCOBALAMIN [Concomitant]
  3. SOLU-MEDROL [Concomitant]
  4. FOLIC ACID [Concomitant]
  5. MULTI-VITAMIN [Concomitant]
  6. ASCORBIC ACID [Concomitant]
  7. COLACE [Concomitant]
  8. PROTONIX [Concomitant]

REACTIONS (2)
  - PHARMACEUTICAL PRODUCT COMPLAINT [None]
  - RESPIRATORY ARREST [None]
